FAERS Safety Report 6651256-6 (Version None)
Quarter: 2010Q1

REPORT INFORMATION
  Report Type: 
  Country: None (occurrence: None)
  Receive Date: 20100322
  Receipt Date: 20100305
  Transmission Date: 20100710
  Serious: Yes (Death, Hospitalization)
  Sender: FDA-Public Use
  Company Number: 2010000802

PATIENT
  Age: 59 Year
  Sex: Male

DRUGS (16)
  1. ERLOTINIB (ERLOTINIB) (TABLET) (ERLOTINIB) [Suspect]
     Indication: HEPATIC NEOPLASM MALIGNANT
     Dosage: (150 MG, QD, ORAL), (100 MG), ORAL
     Route: 048
     Dates: start: 20091209, end: 20091231
  2. ERLOTINIB (ERLOTINIB) (TABLET) (ERLOTINIB) [Suspect]
     Indication: HEPATIC NEOPLASM MALIGNANT
     Dosage: (150 MG, QD, ORAL), (100 MG), ORAL
     Route: 048
     Dates: start: 20100101, end: 20100106
  3. SORAFENIB [Suspect]
     Indication: HEPATIC NEOPLASM MALIGNANT
     Dosage: (800 MG QD), ORAL
     Route: 048
     Dates: start: 20091209
  4. VALSARTAN [Concomitant]
  5. METFORMIN HCL [Concomitant]
  6. DIAMICRON (GLICLAZIDE) [Concomitant]
  7. TRAMADOL HCL [Concomitant]
  8. PRIMPERAN TAB [Concomitant]
  9. SMECTITE (SMECTITE) [Concomitant]
  10. PHLOROGLUCINOL (PHLOROGLUCINOL) [Concomitant]
  11. LOPERAMIDE HYDROCHLORIDE [Concomitant]
  12. FUCIDINE CAP [Concomitant]
  13. LOCOID [Concomitant]
  14. MEBEVERINE HYDROCHLORIDE (MEBEVERINE HYDROCHLORIDE) [Concomitant]
  15. ALDACTONE [Concomitant]
  16. TRAMADOL HCL [Concomitant]

REACTIONS (1)
  - ENCEPHALOPATHY [None]
